FAERS Safety Report 6442797-5 (Version None)
Quarter: 2009Q4

REPORT INFORMATION
  Report Type: 
  Country: None (occurrence: None)
  Receive Date: 20091117
  Receipt Date: 20091112
  Transmission Date: 20100525
  Serious: Yes (Life-Threatening, Other)
  Sender: FDA-Public Use
  Company Number: PHEH2009US15700

PATIENT
  Age: 39 Year
  Sex: Female

DRUGS (4)
  1. VALTURNA [Suspect]
     Dosage: 150/160 ONCE DAILY
     Route: 048
     Dates: start: 20091001
  2. LISINOPRIL [Concomitant]
     Dosage: 40 MG, UNK
  3. CLONIDINE [Concomitant]
     Dosage: 0.2 MG, BID
  4. LASIX [Concomitant]
     Dosage: 40 MG, UNK

REACTIONS (4)
  - BLOOD PRESSURE SYSTOLIC INCREASED [None]
  - CEREBROVASCULAR ACCIDENT [None]
  - GAIT DISTURBANCE [None]
  - PERONEAL NERVE PALSY [None]
